FAERS Safety Report 9233790 (Version 1)
Quarter: 2013Q2

REPORT INFORMATION
  Report Type: Spontaneous
  Country: US (occurrence: US)
  Receive Date: 20130416
  Receipt Date: 20130416
  Transmission Date: 20140414
  Serious: No
  Sender: FDA-Public Use
  Company Number: US-BANPHARM-20131075

PATIENT
  Age: 79 Year
  Sex: Male
  Weight: 70.31 kg

DRUGS (9)
  1. ALEVE LIQUID GELS 220MG [Suspect]
     Indication: BACK PAIN
     Dosage: 1 DF, BID,
     Route: 048
     Dates: start: 201205
  2. BENICAR [Concomitant]
  3. SYNTHROID [Concomitant]
  4. GENERIC ASPIRIN 162.5 MG [Concomitant]
  5. ZETIA [Concomitant]
  6. MULTIVITAMIN [Concomitant]
  7. FISH OIL [Concomitant]
  8. CO-Q 10 [Concomitant]
  9. RED YEAST RICE [Concomitant]

REACTIONS (3)
  - Blood pressure increased [Not Recovered/Not Resolved]
  - Rash [Not Recovered/Not Resolved]
  - Incorrect drug administration duration [Unknown]
